FAERS Safety Report 16568255 (Version 3)
Quarter: 2020Q2

REPORT INFORMATION
  Report Type: Report from Study
  Country: JP (occurrence: JP)
  Receive Date: 20190712
  Receipt Date: 20200623
  Transmission Date: 20200713
  Serious: Yes (Death, Life-Threatening, Hospitalization, Other)
  Sender: FDA-Public Use
  Company Number: JP-009507513-1907JPN000591J

PATIENT
  Age: 42 Year
  Sex: Female
  Weight: 87 kg

DRUGS (5)
  1. TEMODAL [Suspect]
     Active Substance: TEMOZOLOMIDE
     Indication: GLIOBLASTOMA MULTIFORME
     Dosage: UNK
     Route: 065
     Dates: end: 201608
  2. CORTRIL [Concomitant]
     Active Substance: HYDROCORTISONE
     Dosage: UNK
     Route: 065
     Dates: start: 20190125
  3. PEMBROLIZUMAB. [Suspect]
     Active Substance: PEMBROLIZUMAB
     Indication: GLIOBLASTOMA MULTIFORME
     Dosage: 200 MILLIGRAM, Q3W
     Route: 041
     Dates: start: 20190529, end: 20190619
  4. MINIRINMELT OD [Concomitant]
     Dosage: UNK
     Route: 065
     Dates: start: 20190125
  5. THYRADIN [Concomitant]
     Active Substance: LEVOTHYROXINE
     Dosage: UNK
     Route: 065
     Dates: start: 20190125

REACTIONS (4)
  - Dehydration [Fatal]
  - Malignant neoplasm progression [Fatal]
  - Adrenal insufficiency [Fatal]
  - Hypopituitarism [Unknown]

NARRATIVE: CASE EVENT DATE: 2019
